FAERS Safety Report 16883758 (Version 1)
Quarter: 2019Q4

REPORT INFORMATION
  Report Type: Spontaneous
  Country: US (occurrence: US)
  Receive Date: 20190807
  Receipt Date: 20190807
  Transmission Date: 20200122
  Serious: Yes (Other)
  Sender: FDA-Public Use
  Company Number: None

PATIENT
  Age: 60 Year
  Sex: Female
  Weight: 67.13 kg

DRUGS (4)
  1. SIGNATURE CARE IBUPROFEN [Suspect]
     Active Substance: IBUPROFEN
  2. VITAMIN D3 [Concomitant]
     Active Substance: CHOLECALCIFEROL
  3. EQUATE IBUPROFEN [Suspect]
     Active Substance: IBUPROFEN
     Indication: MYALGIA
     Dosage: ?          QUANTITY:2 DF DOSAGE FORM;?
     Route: 048
  4. ESTRADIOL. [Concomitant]
     Active Substance: ESTRADIOL

REACTIONS (1)
  - Hypersensitivity [None]
